FAERS Safety Report 21740485 (Version 2)
Quarter: 2023Q1

REPORT INFORMATION
  Report Type: Spontaneous
  Country: JP (occurrence: JP)
  Receive Date: 20221216
  Receipt Date: 20230127
  Transmission Date: 20230418
  Serious: Yes (Hospitalization)
  Sender: FDA-Public Use
  Company Number: JP-DSPHARMA-2022SMP015416

PATIENT
  Age: 58 Year
  Sex: Female

DRUGS (1)
  1. LATUDA [Suspect]
     Active Substance: LURASIDONE HYDROCHLORIDE
     Indication: Depressive symptom
     Dosage: 40 MG, QD
     Route: 048

REACTIONS (2)
  - Psychiatric symptom [Unknown]
  - Off label use [Unknown]
